FAERS Safety Report 7655137-0 (Version None)
Quarter: 2011Q3

REPORT INFORMATION
  Report Type: 
  Country: None (occurrence: None)
  Receive Date: 20110729
  Receipt Date: 20110718
  Transmission Date: 20111222
  Serious: Yes (Other)
  Sender: FDA-Public Use
  Company Number: 1000021991

PATIENT
  Age: 36 Year
  Sex: Male

DRUGS (1)
  1. CITALOPRAM HYDROBROMIDE [Suspect]
     Dosage: 30 MG (30 MG, 1 IN 1 D) ORAL
     Route: 048
     Dates: start: 20080101, end: 20101101

REACTIONS (8)
  - ALCOHOL WITHDRAWAL SYNDROME [None]
  - TREMOR [None]
  - DELIRIUM [None]
  - HYPERHIDROSIS [None]
  - HYPONATRAEMIA [None]
  - HALLUCINATION [None]
  - RESTLESSNESS [None]
  - PANCYTOPENIA [None]
